FAERS Safety Report 19878421 (Version 2)
Quarter: 2021Q4

REPORT INFORMATION
  Report Type: Report from Study
  Country: US (occurrence: US)
  Receive Date: 20210923
  Receipt Date: 20211005
  Transmission Date: 20220303
  Serious: No
  Sender: FDA-Public Use
  Company Number: NVSC2021US216227

PATIENT
  Sex: Male

DRUGS (1)
  1. ENTRESTO [Suspect]
     Active Substance: SACUBITRIL\VALSARTAN
     Indication: Product used for unknown indication
     Dosage: 100 MG, BID (97/103 MG)
     Route: 048

REACTIONS (7)
  - Product dose omission issue [Unknown]
  - Renal pain [Unknown]
  - Weight decreased [Unknown]
  - Eye oedema [Unknown]
  - Sleep apnoea syndrome [Unknown]
  - Hearing aid user [Unknown]
  - Cough [Unknown]
